FAERS Safety Report 6565787-0 (Version None)
Quarter: 2010Q1

REPORT INFORMATION
  Report Type: 
  Country: None (occurrence: None)
  Receive Date: 20100126
  Receipt Date: 20100114
  Transmission Date: 20100710
  Serious: Yes (Other)
  Sender: FDA-Public Use
  Company Number: 238799K09USA

PATIENT
  Age: 34 Year
  Sex: Female
  Weight: 75 kg

DRUGS (7)
  1. REBIF [Suspect]
     Indication: MULTIPLE SCLEROSIS
     Dosage: 22 MCG, 3 IN 1 WEEKS, SUBCUTANEOUS
     Route: 058
     Dates: start: 20090713, end: 20090101
  2. REBIF [Suspect]
     Indication: MULTIPLE SCLEROSIS
     Dosage: 22 MCG, 3 IN 1 WEEKS, SUBCUTANEOUS
     Route: 058
     Dates: start: 20090101
  3. MULTIVITAMIN [Concomitant]
  4. BIRTH CONTROL PILL (ORAL CONTRACEPTIVE NOS) [Concomitant]
  5. NEXIUM [Concomitant]
  6. POTASSIUM (POTASSIUM /00031401/) [Concomitant]
  7. ALEVE [Concomitant]

REACTIONS (8)
  - ABDOMINAL PAIN [None]
  - BLOOD CHOLESTEROL INCREASED [None]
  - DIPLOPIA [None]
  - GALLBLADDER DISORDER [None]
  - INJECTION SITE ERYTHEMA [None]
  - INJECTION SITE PAIN [None]
  - LIVER FUNCTION TEST ABNORMAL [None]
  - PROCEDURAL NAUSEA [None]
